FAERS Safety Report 9449154 (Version 1)
Quarter: 2013Q3

REPORT INFORMATION
  Report Type: Spontaneous
  Country: US (occurrence: None)
  Receive Date: 20130806
  Receipt Date: 20130806
  Transmission Date: 20140515
  Serious: Yes (Other)
  Sender: FDA-Public Use
  Company Number: 2013P1012458

PATIENT
  Age: 58 Year
  Sex: Female

DRUGS (1)
  1. INFUMORPH [Suspect]
     Indication: PAIN
     Dates: start: 20130117

REACTIONS (10)
  - Procedural nausea [None]
  - Diplopia [None]
  - Dizziness [None]
  - Subdural effusion [None]
  - Subdural haematoma [None]
  - Headache [None]
  - VIth nerve paralysis [None]
  - Intracranial hypotension [None]
  - Nausea [None]
  - Activities of daily living impaired [None]
